FAERS Safety Report 23668323 (Version 1)
Quarter: 2024Q1

REPORT INFORMATION
  Report Type: Report from Study
  Country: US (occurrence: None)
  Receive Date: 20240325
  Receipt Date: 20240325
  Transmission Date: 20240410
  Serious: Yes (Hospitalization, Other)
  Sender: FDA-Public Use
  Company Number: 2024A066611

PATIENT
  Sex: Female
  Weight: 72.1 kg

DRUGS (1)
  1. CALQUENCE [Suspect]
     Active Substance: ACALABRUTINIB
     Indication: Chronic lymphocytic leukaemia
     Route: 048
     Dates: start: 20230220

REACTIONS (3)
  - Seizure [Recovering/Resolving]
  - Fall [Unknown]
  - Intentional dose omission [Recovering/Resolving]
